FAERS Safety Report 9695951 (Version 5)
Quarter: 2014Q1

REPORT INFORMATION
  Report Type: Spontaneous
  Country: US (occurrence: US)
  Receive Date: 20131119
  Receipt Date: 20140321
  Transmission Date: 20141002
  Serious: No
  Sender: FDA-Public Use
  Company Number: US-009507513-1310USA007865

PATIENT
  Age: 52 Year
  Sex: Male

DRUGS (4)
  1. BOCEPREVIR [Suspect]
     Indication: CHRONIC HEPATITIS C
     Dosage: UNK, TID
     Dates: start: 20130903
  2. PEGASYS [Suspect]
     Indication: CHRONIC HEPATITIS C
     Dosage: 180 MICROGRAM, QW, PROCLICK INJECTOR
     Route: 058
     Dates: start: 20130903
  3. RIBASPHERE [Suspect]
     Indication: CHRONIC HEPATITIS C
     Dosage: 1200MG , QD, DIVIDED DOSES
     Route: 048
     Dates: start: 20130903
  4. RIBASPHERE [Suspect]
     Dosage: DIVIDED DOSES
     Route: 048

REACTIONS (5)
  - Pruritus [Unknown]
  - White blood cell count decreased [Unknown]
  - Exposure via direct contact [Unknown]
  - Platelet count decreased [Unknown]
  - Urticaria [Unknown]
